FAERS Safety Report 6339613-9 (Version None)
Quarter: 2009Q3

REPORT INFORMATION
  Report Type: 
  Country: None (occurrence: None)
  Receive Date: 20090903
  Receipt Date: 20090828
  Transmission Date: 20100115
  Serious: Yes (Other)
  Sender: FDA-Public Use
  Company Number: US-MERCK-0805USA04447B1

PATIENT

DRUGS (3)
  1. SINGULAIR [Suspect]
     Indication: ASTHMA
     Route: 064
     Dates: start: 20040101
  2. ZYRTEC [Concomitant]
     Route: 064
  3. PROVENTIL-HFA [Concomitant]
     Route: 064

REACTIONS (2)
  - ADVERSE EVENT [None]
  - FOETAL MALPOSITION [None]
